FAERS Safety Report 18516180 (Version 1)
Quarter: 2020Q4

REPORT INFORMATION
  Report Type: Spontaneous
  Country: US (occurrence: US)
  Receive Date: 20201118
  Receipt Date: 20201118
  Transmission Date: 20210114
  Serious: Yes (Hospitalization)
  Sender: FDA-Public Use
  Company Number: None

PATIENT
  Age: 48 Year
  Sex: Female

DRUGS (3)
  1. EFFEXOR, LEVOTHYROXINE, DEXAMETHASONE, ONDANSETRON, CAPECITABINE [Concomitant]
  2. FLUTICASONE, CETIRIZINE, VENLAFAXINE, PROCHLOPERAZINE [Concomitant]
  3. PIQRAY [Suspect]
     Active Substance: ALPELISIB
     Indication: BREAST CANCER FEMALE
     Route: 048
     Dates: start: 20200812

REACTIONS (2)
  - Dyspnoea [None]
  - General symptom [None]

NARRATIVE: CASE EVENT DATE: 20201116
